FAERS Safety Report 10579522 (Version 7)
Quarter: 2015Q3

REPORT INFORMATION
  Report Type: Report from Study
  Country: GB (occurrence: GB)
  Receive Date: 20141112
  Receipt Date: 20150922
  Transmission Date: 20151125
  Serious: Yes (Death, Hospitalization)
  Sender: FDA-Public Use
  Company Number: GB-CELGENE-GBR-2014102297

PATIENT
  Age: 67 Year
  Sex: Female

DRUGS (7)
  1. THALIDOMIDE [Suspect]
     Active Substance: THALIDOMIDE
     Dosage: TOTAL DOSE 4200MG
     Route: 048
     Dates: end: 20121022
  2. THALIDOMIDE [Suspect]
     Active Substance: THALIDOMIDE
     Indication: PLASMA CELL MYELOMA
     Dosage: TOTAL DOSE 4200MG
     Route: 048
     Dates: start: 20120726
  3. CYCLOPHOSPHAMIDE. [Suspect]
     Active Substance: CYCLOPHOSPHAMIDE
     Indication: PLASMA CELL MYELOMA
     Dosage: TOTAL DOSE 900MG
     Route: 048
     Dates: start: 20120726
  4. AMOXICILLIN. [Suspect]
     Active Substance: AMOXICILLIN
     Indication: PRODUCT USED FOR UNKNOWN INDICATION
     Route: 065
  5. CYCLOPHOSPHAMIDE. [Suspect]
     Active Substance: CYCLOPHOSPHAMIDE
     Dosage: TOTAL DOSE 900MG
     Route: 048
     Dates: end: 20121016
  6. DEXAMETHASONE. [Suspect]
     Active Substance: DEXAMETHASONE
     Dosage: TOTAL DOSE 160MG
     Route: 048
     Dates: end: 20121016
  7. DEXAMETHASONE. [Suspect]
     Active Substance: DEXAMETHASONE
     Indication: PLASMA CELL MYELOMA
     Dosage: TOTAL DOSE 160MG
     Route: 048
     Dates: start: 20120726

REACTIONS (2)
  - Adenocarcinoma pancreas [Fatal]
  - Muscular weakness [Recovered/Resolved]

NARRATIVE: CASE EVENT DATE: 20140925
